FAERS Safety Report 24350221 (Version 1)
Quarter: 2024Q3

REPORT INFORMATION
  Report Type: Spontaneous
  Country: US (occurrence: None)
  Receive Date: 20240921
  Receipt Date: 20240921
  Transmission Date: 20241017
  Serious: Yes (Hospitalization)
  Sender: Public
  Company Number: None

PATIENT
  Age: 6 Year
  Sex: Female
  Weight: 21.1 kg

DRUGS (4)
  1. LEUCOVORIN CALCIUM [Suspect]
     Active Substance: LEUCOVORIN CALCIUM
     Dates: end: 20240906
  2. MERCAPTOPURINE [Suspect]
     Active Substance: MERCAPTOPURINE
     Dates: end: 20240908
  3. METHOTREXATE [Suspect]
     Active Substance: METHOTREXATE
     Dates: end: 20240904
  4. VINCRISTINE SULFATE [Suspect]
     Active Substance: VINCRISTINE SULFATE
     Dates: start: 20240903, end: 20240903

REACTIONS (6)
  - Pyrexia [None]
  - Mucosal inflammation [None]
  - Lethargy [None]
  - Vomiting [None]
  - Oral pain [None]
  - Oropharyngeal pain [None]

NARRATIVE: CASE EVENT DATE: 20240908
